FAERS Safety Report 10257114 (Version 1)
Quarter: 2014Q2

REPORT INFORMATION
  Report Type: Spontaneous
  Country: CA (occurrence: CA)
  Receive Date: 20140625
  Receipt Date: 20140625
  Transmission Date: 20141212
  Serious: Yes (Other)
  Sender: FDA-Public Use
  Company Number: CA-ROCHE-1423115

PATIENT
  Age: 77 Year
  Sex: Female
  Weight: 72.64 kg

DRUGS (2)
  1. ALTEPLASE [Suspect]
     Indication: PRODUCT USED FOR UNKNOWN INDICATION
     Route: 042
  2. ALTEPLASE [Suspect]
     Route: 040

REACTIONS (2)
  - Erythema [Unknown]
  - Swollen tongue [Unknown]
